FAERS Safety Report 7571846-6 (Version None)
Quarter: 2011Q2

REPORT INFORMATION
  Report Type: 
  Country: None (occurrence: None)
  Receive Date: 20110624
  Receipt Date: 20110616
  Transmission Date: 20111010
  Serious: Yes (Other)
  Sender: FDA-Public Use
  Company Number: US-US-EMD SERONO, INC.-7065776

PATIENT
  Sex: Male

DRUGS (2)
  1. REBIF [Suspect]
     Indication: PRODUCT USED FOR UNKNOWN INDICATION
     Route: 058
     Dates: start: 20110511
  2. STEROID INFUSIONS [Concomitant]

REACTIONS (4)
  - CONTUSION [None]
  - BRAIN OEDEMA [None]
  - ASTHENIA [None]
  - URINARY INCONTINENCE [None]
